FAERS Safety Report 20951845 (Version 1)
Quarter: 2022Q2

REPORT INFORMATION
  Report Type: Spontaneous
  Country: US (occurrence: US)
  Receive Date: 20220613
  Receipt Date: 20220613
  Transmission Date: 20220721
  Serious: No
  Sender: FDA-Public Use
  Company Number: US-JNJFOC-20220612588

PATIENT
  Age: 3 Decade
  Sex: Male

DRUGS (1)
  1. MENS ROGAINE EXTRA STRENGTH [Suspect]
     Active Substance: MINOXIDIL
     Indication: Alopecia
     Dosage: 1 ML IN DROPPER. EVERYDAY / 2 TIMES A DAY.
     Route: 065
     Dates: start: 20211208

REACTIONS (1)
  - Drug ineffective [Unknown]
